FAERS Safety Report 9163626 (Version 3)
Quarter: 2013Q2

REPORT INFORMATION
  Report Type: Spontaneous
  Country: PL (occurrence: PL)
  Receive Date: 20130314
  Receipt Date: 20130425
  Transmission Date: 20140414
  Serious: Yes (Other)
  Sender: FDA-Public Use
  Company Number: PL-AMGEN-POLSP2013015359

PATIENT
  Age: 76 Year
  Sex: Female
  Weight: 60 kg

DRUGS (2)
  1. PROLIA [Suspect]
     Indication: OSTEOPOROSIS POSTMENOPAUSAL
     Dosage: 60 MG, Q6MO
     Route: 058
     Dates: start: 201009
  2. CONCOR COR [Concomitant]
     Dosage: 2.5 MG, 1/2 OF TABLET
     Route: 048

REACTIONS (5)
  - Osteonecrosis of jaw [Recovered/Resolved]
  - Gingival inflammation [Unknown]
  - Gingival pain [Unknown]
  - Tooth abscess [Unknown]
  - Dental fistula [Unknown]
